FAERS Safety Report 5867182-6 (Version None)
Quarter: 2008Q3

REPORT INFORMATION
  Report Type: 
  Country: None (occurrence: None)
  Receive Date: 20080829
  Receipt Date: 20080829
  Transmission Date: 20090109
  Serious: No
  Sender: FDA-Public Use
  Company Number: None

PATIENT
  Age: 43 Year
  Sex: Male
  Weight: 99.7913 kg

DRUGS (1)
  1. INVEGA [Suspect]
     Indication: SCHIZOPHRENIA
     Dosage: 3MG QAM PO
     Route: 048
     Dates: start: 20080306, end: 20080827

REACTIONS (6)
  - DIZZINESS [None]
  - INSOMNIA [None]
  - MUSCULAR WEAKNESS [None]
  - NAUSEA [None]
  - RESTLESSNESS [None]
  - UNEVALUABLE EVENT [None]
